FAERS Safety Report 4441253-3 (Version None)
Quarter: 2004Q3

REPORT INFORMATION
  Report Type: 
  Country: None (occurrence: None)
  Receive Date: 20040728
  Receipt Date: 20040427
  Transmission Date: 20050211
  Serious: No
  Sender: FDA-Public Use
  Company Number: USA040466058

PATIENT
  Age: 54 Year
  Sex: Female

DRUGS (5)
  1. STRATTERA [Suspect]
     Dosage: 18 MG
     Dates: start: 20040426
  2. BUSPAR (HYDROCHLORIDE) [Concomitant]
  3. VIOXX [Concomitant]
  4. PREVACID [Concomitant]
  5. ROBAXIN [Concomitant]

REACTIONS (5)
  - DRY MOUTH [None]
  - DYSPNOEA [None]
  - HEART RATE INCREASED [None]
  - HYPERHIDROSIS [None]
  - NAUSEA [None]
